FAERS Safety Report 9611314 (Version 2)
Quarter: 2013Q4

REPORT INFORMATION
  Report Type: Spontaneous
  Country: US (occurrence: US)
  Receive Date: 20131010
  Receipt Date: 20131010
  Transmission Date: 20140711
  Serious: Yes (Hospitalization)
  Sender: FDA-Public Use
  Company Number: US-BIOGENIDEC-2013BI097123

PATIENT
  Age: 32 Year
  Sex: Male

DRUGS (1)
  1. TYSABRI [Suspect]
     Indication: MULTIPLE SCLEROSIS
     Route: 042
     Dates: start: 20130129

REACTIONS (6)
  - Road traffic accident [Recovered/Resolved]
  - Pelvic fracture [Not Recovered/Not Resolved]
  - Rib fracture [Not Recovered/Not Resolved]
  - Jaw fracture [Not Recovered/Not Resolved]
  - Tremor [Not Recovered/Not Resolved]
  - Multiple sclerosis [Unknown]
